FAERS Safety Report 9300469 (Version 1)
Quarter: 2013Q2

REPORT INFORMATION
  Report Type: Spontaneous
  Country: US (occurrence: US)
  Receive Date: 20130521
  Receipt Date: 20130521
  Transmission Date: 20140414
  Serious: No
  Sender: FDA-Public Use
  Company Number: US-BAYER-2013-062614

PATIENT
  Sex: Female

DRUGS (2)
  1. BETASERON [Suspect]
     Dosage: 0.3 MG, QOD
     Route: 058
  2. VITAMIN D [Concomitant]
     Dosage: 1000 U, UNK

REACTIONS (1)
  - Rash papular [None]
